FAERS Safety Report 5764788-X (Version None)
Quarter: 2008Q2

REPORT INFORMATION
  Report Type: 
  Country: None (occurrence: None)
  Receive Date: 20080611
  Receipt Date: 20080606
  Transmission Date: 20081010
  Serious: Yes (Other)
  Sender: FDA-Public Use
  Company Number: AU-WYE-G01660908

PATIENT
  Sex: Male

DRUGS (1)
  1. EFFEXOR XR [Suspect]
     Indication: STRESS
     Dosage: 37.5 MG DAILY
     Route: 048
     Dates: start: 20080604, end: 20080605

REACTIONS (1)
  - SELF-INJURIOUS IDEATION [None]
